FAERS Safety Report 19458822 (Version 4)
Quarter: 2021Q3

REPORT INFORMATION
  Report Type: Spontaneous
  Country: PL (occurrence: PL)
  Receive Date: 20210624
  Receipt Date: 20210920
  Transmission Date: 20211014
  Serious: Yes (Life-Threatening, Hospitalization, Other)
  Sender: FDA-Public Use
  Company Number: PL-PFIZER INC-2021697987

PATIENT
  Age: 75 Year
  Sex: Male
  Weight: 78.1 kg

DRUGS (38)
  1. ACIDUM ZOLEDRONICUM [Concomitant]
     Active Substance: ZOLEDRONIC ACID
     Indication: PROPHYLAXIS
     Dosage: 4 MG, CYCLIC (EVERY 4 WEEK)
     Route: 041
     Dates: start: 20210226
  2. PERINDOPRIL [Concomitant]
     Active Substance: PERINDOPRIL
     Indication: HYPERTENSION
     Dosage: 2.5 MG, 1X/DAY
     Route: 048
     Dates: start: 20210308, end: 20210309
  3. OMEPRAZOLE. [Concomitant]
     Active Substance: OMEPRAZOLE
     Indication: ABDOMINAL PAIN UPPER
     Dosage: 20 MG, 1X/DAY
     Route: 048
     Dates: start: 20210207
  4. VANCOMYCINUM [VANCOMYCIN] [Concomitant]
     Indication: PROPHYLAXIS
     Dosage: 250 MG, 1X/DAY
     Route: 041
     Dates: start: 20210327, end: 20210329
  5. CHLORPROMAZINE. [Concomitant]
     Active Substance: CHLORPROMAZINE
     Indication: PROPHYLAXIS
     Dosage: 20 DROP
     Route: 048
     Dates: start: 20210321, end: 20210323
  6. NEBIVOLOL. [Concomitant]
     Active Substance: NEBIVOLOL
     Indication: HYPERTENSION
     Dosage: 5 MG
     Route: 048
     Dates: start: 2018
  7. CLEMASTINE [Concomitant]
     Active Substance: CLEMASTINE
     Indication: PROPHYLAXIS
     Dosage: 2 MG, 1X/DAY
     Route: 041
     Dates: start: 20210212
  8. CARBOPLATIN. [Suspect]
     Active Substance: CARBOPLATIN
     Indication: NON-SMALL CELL LUNG CANCER METASTATIC
     Dosage: 464 MG, EVERY 3 WEEKS
     Route: 041
     Dates: start: 20210212, end: 20210212
  9. RED BLOOD CELLS?LEUKOCYTES REDUCED [Concomitant]
     Active Substance: HUMAN RED BLOOD CELL
     Indication: ANAEMIA
     Dosage: 600 ML, 1X/DAY
     Route: 041
     Dates: start: 20210327, end: 20210327
  10. MAGNESIUM SULFATE. [Concomitant]
     Active Substance: MAGNESIUM SULFATE
     Indication: PROPHYLAXIS
     Dosage: UNK, 1X/DAY
     Route: 041
     Dates: start: 20210212
  11. ONDANSETRON [Concomitant]
     Active Substance: ONDANSETRON
     Indication: PROPHYLAXIS
     Dosage: 8 MG, 1X/DAY
     Route: 048
     Dates: start: 20210212
  12. INDACATEROL MALEATE [Concomitant]
     Active Substance: INDACATEROL MALEATE
     Indication: CHRONIC OBSTRUCTIVE PULMONARY DISEASE
     Dosage: UNK
     Route: 055
     Dates: start: 202010
  13. OXYCODONE [Concomitant]
     Active Substance: OXYCODONE
     Indication: ANALGESIC THERAPY
     Dosage: 2 DF, 1X/DAY
     Route: 048
     Dates: start: 202101, end: 20210213
  14. OXYCODONE [Concomitant]
     Active Substance: OXYCODONE
     Dosage: 20 MG, 1X/DAY
     Route: 048
     Dates: start: 20210219
  15. PREGABALIN. [Concomitant]
     Active Substance: PREGABALIN
     Indication: ANALGESIC THERAPY
     Dosage: 150 MG, 1X/DAY
     Route: 048
     Dates: start: 20210321, end: 20210323
  16. GLYCOPYRRONIUM BROMIDE [Concomitant]
     Active Substance: GLYCOPYRROLATE
     Dosage: UNK
  17. TAMSULOSIN [Concomitant]
     Active Substance: TAMSULOSIN
     Indication: BENIGN PROSTATIC HYPERPLASIA
     Dosage: 40 MG
     Route: 048
     Dates: start: 2018
  18. HLX 10 [Suspect]
     Active Substance: SERPLULIMAB
     Indication: NON-SMALL CELL LUNG CANCER METASTATIC
     Dosage: 351.45 MG
     Route: 041
     Dates: start: 20210212, end: 20210212
  19. OXYCODONE [Concomitant]
     Active Substance: OXYCODONE
     Indication: PROPHYLAXIS
     Dosage: 10 MG, 1X/DAY
     Route: 048
     Dates: start: 20210219
  20. DEXAMETHASONE. [Concomitant]
     Active Substance: DEXAMETHASONE
     Indication: PROPHYLAXIS
     Dosage: 4 MG, 1X/DAY
     Route: 041
     Dates: start: 20210327, end: 20210327
  21. PREDNISONE. [Concomitant]
     Active Substance: PREDNISONE
     Dosage: 5 MG, WEEKLY
     Route: 048
     Dates: start: 20210212
  22. BUDESONIDE. [Concomitant]
     Active Substance: BUDESONIDE
     Indication: CHRONIC OBSTRUCTIVE PULMONARY DISEASE
     Dosage: UNK, 1X/DAY
     Route: 055
     Dates: start: 202010
  23. CHOLECALCIFEROL [Concomitant]
     Active Substance: CHOLECALCIFEROL
     Indication: SUPPLEMENTATION THERAPY
     Dosage: 2000 IU, 1X/DAY
     Route: 041
     Dates: start: 20210226
  24. GLUCOSE MONOHYDRATE [Concomitant]
     Active Substance: DEXTROSE MONOHYDRATE
     Indication: DIARRHOEA
     Dosage: UNK
     Dates: start: 2021
  25. ABRAXANE [Suspect]
     Active Substance: PACLITAXEL
     Indication: NON-SMALL CELL LUNG CANCER METASTATIC
     Dosage: 197 MG, WEEKLY
     Route: 041
     Dates: start: 20210212
  26. FLUCONAZOLUM [FLUCONAZOLE] [Concomitant]
     Indication: CANDIDA INFECTION
     Dosage: 100 MG, 1X/DAY
     Route: 048
     Dates: start: 20210304, end: 20210309
  27. FUROSEMIDUM [FUROSEMIDE] [Concomitant]
     Active Substance: FUROSEMIDE
     Indication: PROPHYLAXIS
     Dosage: UNK, 1X/DAY
     Route: 041
     Dates: start: 20210212
  28. ATORVASTATIN [Concomitant]
     Active Substance: ATORVASTATIN
     Indication: HYPERCHOLESTEROLAEMIA
     Dosage: 2 MG
     Route: 048
     Dates: start: 2019
  29. MEGESTROL [Concomitant]
     Active Substance: MEGESTROL
     Indication: INCREASED APPETITE
     Dosage: 20 ML, 1X/DAY
     Route: 048
     Dates: start: 20210304, end: 20210305
  30. LOPERAMID [Concomitant]
     Active Substance: LOPERAMIDE
     Indication: DIARRHOEA
     Dosage: UNK
     Dates: start: 2021
  31. BLOOD [Concomitant]
     Active Substance: WHOLE BLOOD
     Indication: ANAEMIA
     Dosage: 600 ML, 1X/DAY
     Route: 041
     Dates: start: 20210327, end: 20210327
  32. POTASSIUM CHLORIDE. [Concomitant]
     Active Substance: POTASSIUM CHLORIDE
     Indication: SUPPLEMENTATION THERAPY
     Dosage: 782 MG, 1X/DAY
     Route: 048
     Dates: start: 20210304, end: 20210305
  33. FAMOTIDINUM [Concomitant]
     Indication: PROPHYLAXIS
     Dosage: 40 MG, WEEKLY
     Route: 048
     Dates: start: 20210308
  34. METFORMIN [Concomitant]
     Active Substance: METFORMIN HYDROCHLORIDE
     Indication: DIABETES MELLITUS
     Dosage: 40 MG
     Route: 048
     Dates: start: 2018
  35. INDAPAMIDE. [Concomitant]
     Active Substance: INDAPAMIDE
     Indication: HYPERTENSION
     Dosage: 15 MG, 1X/DAY
     Route: 048
     Dates: start: 20201019
  36. PREDNISONE. [Concomitant]
     Active Substance: PREDNISONE
     Indication: PROPHYLAXIS
     Dosage: 10 MG, WEEKLY
     Route: 048
     Dates: start: 20210212
  37. SMECTA [Concomitant]
     Active Substance: MONTMORILLONITE
     Indication: DIARRHOEA
     Dosage: UNK
     Dates: start: 2021
  38. CALCIUM CARBONATE. [Concomitant]
     Active Substance: CALCIUM CARBONATE
     Indication: SUPPLEMENTATION THERAPY
     Dosage: 200 MG, 1X/DAY
     Route: 041
     Dates: start: 20210226

REACTIONS (1)
  - Neutropenia [Recovered/Resolved]

NARRATIVE: CASE EVENT DATE: 20210304
